FAERS Safety Report 20387967 (Version 1)
Quarter: 2022Q1

REPORT INFORMATION
  Report Type: Spontaneous
  Country: US (occurrence: US)
  Receive Date: 20220128
  Receipt Date: 20220128
  Transmission Date: 20220423
  Serious: No
  Sender: FDA-Public Use
  Company Number: US-ALLERGAN-2136333US

PATIENT
  Age: 51 Year
  Sex: Female

DRUGS (5)
  1. BOTOX COSMETIC [Suspect]
     Active Substance: ONABOTULINUMTOXINA
     Indication: Skin wrinkling
     Dosage: 20 UNITS, SINGLE
     Dates: start: 20210922, end: 20210922
  2. BOTOX COSMETIC [Suspect]
     Active Substance: ONABOTULINUMTOXINA
     Indication: Skin wrinkling
     Dosage: 6 UNITS, SINGLE
     Dates: start: 20210922, end: 20210922
  3. BOTOX COSMETIC [Suspect]
     Active Substance: ONABOTULINUMTOXINA
     Indication: Skin wrinkling
     Dosage: 16 UNITS, SINGLE
     Dates: start: 20210922, end: 20210922
  4. JUVEDERM [Suspect]
     Active Substance: HYALURONIC ACID
     Indication: Skin cosmetic procedure
     Dosage: UNK
     Dates: start: 20210926, end: 20210926
  5. AMBIEN [Concomitant]
     Active Substance: ZOLPIDEM TARTRATE
     Indication: Sleep disorder

REACTIONS (5)
  - Anxiety [Not Recovered/Not Resolved]
  - Product preparation error [Unknown]
  - Swelling of eyelid [Not Recovered/Not Resolved]
  - Eyelid ptosis [Not Recovered/Not Resolved]
  - Vision blurred [Not Recovered/Not Resolved]

NARRATIVE: CASE EVENT DATE: 20211007
